FAERS Safety Report 16872673 (Version 9)
Quarter: 2022Q1

REPORT INFORMATION
  Report Type: Spontaneous
  Country: FR (occurrence: FR)
  Receive Date: 20191001
  Receipt Date: 20220120
  Transmission Date: 20220423
  Serious: Yes (Hospitalization, Other)
  Sender: FDA-Public Use
  Company Number: FR-MYLANLABS-2019M1090859

PATIENT
  Age: 72 Year
  Sex: Female
  Weight: 75 kg

DRUGS (27)
  1. HYDROCHLOROTHIAZIDE\VALSARTAN [Suspect]
     Active Substance: HYDROCHLOROTHIAZIDE\VALSARTAN
     Indication: Hypertension
     Dosage: 1 DOSAGE FORM
  2. HYDROCHLOROTHIAZIDE\VALSARTAN [Suspect]
     Active Substance: HYDROCHLOROTHIAZIDE\VALSARTAN
     Dosage: 1 DOSAGE FORM
  3. HYDROCHLOROTHIAZIDE\VALSARTAN [Suspect]
     Active Substance: HYDROCHLOROTHIAZIDE\VALSARTAN
     Dosage: 1 DOSAGE FORM: VALSARTAN= 160 MG
     Route: 065
     Dates: start: 201403, end: 201609
  4. HYDROCHLOROTHIAZIDE\VALSARTAN [Suspect]
     Active Substance: HYDROCHLOROTHIAZIDE\VALSARTAN
     Dosage: 1 DOSAGE FORM
     Route: 065
     Dates: start: 20140325, end: 20160618
  5. HYDROCHLOROTHIAZIDE\VALSARTAN [Suspect]
     Active Substance: HYDROCHLOROTHIAZIDE\VALSARTAN
     Indication: Hypertension
     Dosage: 1 DOSAGE FORM: VALSARTAN= 160 MG (3-SEP-2016-18-SEP-2018)
     Route: 065
  6. HYDROCHLOROTHIAZIDE\VALSARTAN [Suspect]
     Active Substance: HYDROCHLOROTHIAZIDE\VALSARTAN
     Dosage: 1 DOSAGE FORM: VALSARTAN= 160 MG (LAST DOSE-??-APR-2015)
  7. HYDROCHLOROTHIAZIDE\VALSARTAN [Suspect]
     Active Substance: HYDROCHLOROTHIAZIDE\VALSARTAN
     Dosage: UNK
  8. HYDROCHLOROTHIAZIDE\VALSARTAN [Suspect]
     Active Substance: HYDROCHLOROTHIAZIDE\VALSARTAN
     Dosage: UNK
  9. CANDESARTAN CILEXETIL [Concomitant]
     Active Substance: CANDESARTAN CILEXETIL
     Dosage: UNK UNK, QD (1-0-0)
  10. CANDESARTAN CILEXETIL [Concomitant]
     Active Substance: CANDESARTAN CILEXETIL
     Dosage: UNK
  11. LERCANIDIPINE TEVA [Concomitant]
     Dosage: UNK UNK, QD (1-0-0)
  12. LERCANIDIPINE TEVA [Concomitant]
     Dosage: UNK (DURING THE PERIOD FROM DEC-2016 TO SEPT-2018)
  13. ATORVASTATIN [Concomitant]
     Active Substance: ATORVASTATIN
     Dosage: UNK UNK, QD (0-0-1)
  14. ATORVASTATIN [Concomitant]
     Active Substance: ATORVASTATIN
     Dosage: UNK
  15. ATORVASTATIN [Concomitant]
     Active Substance: ATORVASTATIN
     Dosage: UNK (DURING THE PERIOD FROM DEC-2016 TO SEPT-2018)
  16. CHOLECALCIFEROL [Concomitant]
     Active Substance: CHOLECALCIFEROL
     Dosage: UNK UNK, QD (1-0-0)
  17. CHOLECALCIFEROL [Concomitant]
     Active Substance: CHOLECALCIFEROL
     Dosage: UNK UNK, QD
  18. Dolipran [Concomitant]
     Dosage: UNK, PRN
  19. Dolipran [Concomitant]
     Dosage: UNK
  20. Dolipran [Concomitant]
     Dosage: UNK (DURING THE PERIOD FROM DEC-2016 TO SEPT-2018)
     Dates: start: 201612, end: 201809
  21. CANDESARTAN CILEXETIL\HYDROCHLOROTHIAZIDE [Concomitant]
     Active Substance: CANDESARTAN CILEXETIL\HYDROCHLOROTHIAZIDE
     Dosage: UNK (SWITCHED FROM CANDESARTAN HYDROCHLOROTHIAZIDE (NOS))
  22. GLUCOSAMINE [Concomitant]
     Active Substance: GLUCOSAMINE
     Dosage: UNK (DURING THE PERIOD FROM DEC-2016 TO SEPT-2018)
     Dates: start: 201612, end: 201809
  23. CHOLECALCIFEROL ARROW [Concomitant]
     Dosage: UNK
  24. CHOLECALCIFEROL ARROW [Concomitant]
     Dosage: UNK (DURING THE PERIOD FROM DEC-2016 TO SEPT-2018)
     Dates: start: 201612, end: 201809
  25. CHOLECALCIFEROL MYLAN [Concomitant]
     Dosage: UNK
  26. CHOLECALCIFEROL MYLAN [Concomitant]
     Dosage: UNK (DURING THE PERIOD FROM DEC-2016 TO SEPT-2018)
     Dates: start: 201612, end: 201809
  27. CANDESARTAN CILEXETIL\HYDROCHLOROTHIAZIDE [Concomitant]
     Active Substance: CANDESARTAN CILEXETIL\HYDROCHLOROTHIAZIDE
     Dosage: UNK

REACTIONS (4)
  - Malignant peritoneal neoplasm [Recovering/Resolving]
  - Ovarian cancer [Recovering/Resolving]
  - Gastrointestinal injury [Recovering/Resolving]
  - Product impurity [Unknown]

NARRATIVE: CASE EVENT DATE: 20180901
